FAERS Safety Report 9178795 (Version 1)
Quarter: 2012Q4

REPORT INFORMATION
  Report Type: 
  Country: TR (occurrence: TR)
  Receive Date: 20121029
  Receipt Date: 20121029
  Transmission Date: 20130627
  Serious: Yes (Other)
  Sender: FDA-Public Use
  Company Number: TR-ROCHE-1146051

PATIENT
  Age: 69 Year
  Sex: Male

DRUGS (5)
  1. ISOTRETINOIN [Suspect]
     Indication: PITYRIASIS RUBRA PILARIS
     Route: 048
  2. ACITRETIN [Suspect]
     Indication: PITYRIASIS RUBRA PILARIS
     Route: 048
  3. CALCIUM [Concomitant]
     Route: 050
  4. METHOTREXATE [Concomitant]
     Route: 050
  5. CALCITRIOL [Concomitant]
     Route: 050

REACTIONS (4)
  - Hyperparathyroidism secondary [Unknown]
  - Renal tubular disorder [Unknown]
  - Gynaecomastia [Unknown]
  - Hypocalcaemia [Unknown]
